FAERS Safety Report 7054793 (Version 23)
Quarter: 2012Q4

REPORT INFORMATION
  Report Type: 
  Country: CA (occurrence: CA)
  Receive Date: 20090720
  Receipt Date: 20121205
  Transmission Date: 20130627
  Serious: Yes (Death, Hospitalization, Other)
  Sender: FDA-Public Use
  Company Number: PHHY2009CA24126

PATIENT
  Sex: Male

DRUGS (8)
  1. SANDOSTATIN LAR [Suspect]
     Indication: CARCINOID TUMOUR
     Dosage: 20 mg, UNK
     Route: 030
     Dates: start: 20050505
  2. SANDOSTATIN LAR [Suspect]
     Dosage: 30 mg, QMO
     Route: 030
     Dates: start: 20050505
  3. SANDOSTATIN LAR [Suspect]
     Dosage: 40 mg, Every 4 weeks
     Route: 030
  4. SANDOSTATIN LAR [Suspect]
     Dosage: 50 mg, Every 4 weeks
     Route: 030
  5. SANDOSTATIN LAR [Suspect]
     Dosage: 60 mg, Every 4 weeks
     Route: 030
     Dates: start: 20050505, end: 20121003
  6. METOPROLOL [Suspect]
  7. VITALUX [Concomitant]
  8. DIGOXIN [Concomitant]

REACTIONS (34)
  - Death [Fatal]
  - Malaise [Unknown]
  - Hyperhidrosis [Unknown]
  - Pallor [Unknown]
  - Skin warm [Unknown]
  - Nausea [Unknown]
  - Vomiting [Unknown]
  - Bradycardia [Recovering/Resolving]
  - Dizziness [Unknown]
  - Fall [Unknown]
  - Heart rate irregular [Unknown]
  - Injection site haemorrhage [Unknown]
  - Contusion [Unknown]
  - Musculoskeletal stiffness [Unknown]
  - Pain in extremity [Unknown]
  - Gait disturbance [Unknown]
  - Flushing [Unknown]
  - Arthralgia [Unknown]
  - Tenderness [Unknown]
  - Hot flush [Unknown]
  - Injection site mass [Recovered/Resolved]
  - Injection site scar [Unknown]
  - Periorbital contusion [Unknown]
  - Swelling [Unknown]
  - Balance disorder [Unknown]
  - Erythema [Unknown]
  - Skin exfoliation [Unknown]
  - Wrong technique in drug usage process [Unknown]
  - Oedema peripheral [Recovered/Resolved]
  - Diarrhoea [Unknown]
  - Fatigue [Unknown]
  - Pain [Recovering/Resolving]
  - Blood pressure systolic increased [Unknown]
  - Injection site pain [Recovering/Resolving]
